FAERS Safety Report 4903500-0 (Version None)
Quarter: 2006Q1

REPORT INFORMATION
  Report Type: 
  Country: None (occurrence: None)
  Receive Date: 20060206
  Receipt Date: 20060206
  Transmission Date: 20060701
  Serious: No
  Sender: FDA-Public Use
  Company Number: None

PATIENT
  Age: 52 Year
  Sex: Male

DRUGS (2)
  1. CEFEPIME [Suspect]
     Indication: DEVICE RELATED INFECTION
     Dosage: 1 GM Q 12
     Dates: start: 20041108
  2. CEFEPIME [Suspect]
     Indication: JOINT PROSTHESIS USER
     Dosage: 1 GM Q 12
     Dates: start: 20041108

REACTIONS (2)
  - CLOSTRIDIUM COLITIS [None]
  - WHITE BLOOD CELL COUNT INCREASED [None]
